FAERS Safety Report 7934227-9 (Version None)
Quarter: 2011Q4

REPORT INFORMATION
  Report Type: 
  Country: None (occurrence: None)
  Receive Date: 20111122
  Receipt Date: 20110825
  Transmission Date: 20120403
  Serious: No
  Sender: FDA-Public Use
  Company Number: US-BAYER-2011-082609

PATIENT
  Age: 85 Year
  Sex: Female
  Weight: 44 kg

DRUGS (4)
  1. ALEVE (CAPLET) [Suspect]
     Indication: PAIN
     Dosage: UNK
     Dates: start: 20110825, end: 20110825
  2. MULTIVITAMIN [Concomitant]
  3. ASPIRIN [Concomitant]
     Dosage: 81 MG, QD
  4. TIMOLOL MALEATE [Concomitant]

REACTIONS (1)
  - PAIN [None]
